FAERS Safety Report 10359971 (Version 1)
Quarter: 2014Q3

REPORT INFORMATION
  Report Type: Report from Study
  Country: US (occurrence: US)
  Receive Date: 20140804
  Receipt Date: 20140804
  Transmission Date: 20150326
  Serious: Yes (Death, Life-Threatening, Other)
  Sender: FDA-Public Use
  Company Number: US-CELGENEUS-163-21880-14075388

PATIENT

DRUGS (4)
  1. BORTEZOMIB [Suspect]
     Active Substance: BORTEZOMIB
     Dosage: 1.3 MILLIGRAM/SQ. METER
     Route: 041
  2. REVLIMID [Suspect]
     Active Substance: LENALIDOMIDE
     Indication: MANTLE CELL LYMPHOMA
     Dosage: 20 MILLIGRAM
     Route: 048
  3. REVLIMID [Suspect]
     Active Substance: LENALIDOMIDE
     Dosage: 15 MILLIGRAM
     Route: 048
  4. BORTEZOMIB [Suspect]
     Active Substance: BORTEZOMIB
     Indication: MANTLE CELL LYMPHOMA
     Dosage: 1.3 MILLIGRAM/SQ. METER
     Route: 041

REACTIONS (33)
  - Sinusitis fungal [Fatal]
  - Neutrophil count decreased [Unknown]
  - Fatigue [Unknown]
  - Weight decreased [Unknown]
  - Blood phosphorus decreased [Unknown]
  - Haemoglobin decreased [Unknown]
  - Lymphopenia [Unknown]
  - Lethargy [Unknown]
  - Dyspnoea [Unknown]
  - Tumour flare [Unknown]
  - Decreased appetite [Unknown]
  - Peripheral sensory neuropathy [Unknown]
  - Pain [Unknown]
  - Death [Fatal]
  - Septic shock [Fatal]
  - Exfoliative rash [Unknown]
  - Platelet count decreased [Unknown]
  - Hypotension [Unknown]
  - Asthenia [Unknown]
  - Infection [Unknown]
  - No therapeutic response [Unknown]
  - Constipation [Unknown]
  - Mantle cell lymphoma [Fatal]
  - Peripheral motor neuropathy [Unknown]
  - Febrile neutropenia [Unknown]
  - Muscular weakness [Unknown]
  - Dizziness [Unknown]
  - Thrombosis [Unknown]
  - Diarrhoea [Unknown]
  - Renal failure acute [Fatal]
  - Malaise [Unknown]
  - Nausea [Unknown]
  - White blood cell count decreased [Unknown]
